FAERS Safety Report 9668915 (Version 1)
Quarter: 2013Q4

REPORT INFORMATION
  Report Type: Spontaneous
  Country: US (occurrence: US)
  Receive Date: 20131105
  Receipt Date: 20131105
  Transmission Date: 20140711
  Serious: Yes (Other)
  Sender: FDA-Public Use
  Company Number: US-AMGEN-USASP2013077375

PATIENT
  Age: 57 Year
  Sex: Female

DRUGS (1)
  1. ENBREL [Suspect]
     Indication: PSORIASIS
     Dosage: 50 MG, ONCE A WEEK
     Route: 065
     Dates: start: 20110210

REACTIONS (2)
  - Hepatitis B core antibody positive [Not Recovered/Not Resolved]
  - Drug effect incomplete [Not Recovered/Not Resolved]
